FAERS Safety Report 17304746 (Version 1)
Quarter: 2020Q1

REPORT INFORMATION
  Report Type: Spontaneous
  Country: US (occurrence: US)
  Receive Date: 20200106
  Receipt Date: 20200106
  Transmission Date: 20200409
  Serious: Yes (Hospitalization)
  Sender: FDA-Public Use
  Company Number: None

PATIENT
  Age: 62 Year
  Sex: Male
  Weight: 140 kg

DRUGS (1)
  1. DAPTOMYCIN (DAPTOMYCIN 250MG/VIL INJ) [Suspect]
     Active Substance: DAPTOMYCIN
     Indication: DIABETIC FOOT INFECTION
     Dosage: ?          OTHER STRENGTH:250 MG/VIL;?
     Route: 042
     Dates: start: 20191213, end: 20191216

REACTIONS (3)
  - Presyncope [None]
  - Dyspnoea [None]
  - Diarrhoea [None]

NARRATIVE: CASE EVENT DATE: 20191216
